FAERS Safety Report 5916925-1 (Version None)
Quarter: 2008Q4

REPORT INFORMATION
  Report Type: 
  Country: None (occurrence: None)
  Receive Date: 20081013
  Receipt Date: 20081009
  Transmission Date: 20090506
  Serious: Yes (Other)
  Sender: FDA-Public Use
  Company Number: US-ROXANE LABORATORIES, INC.-2008-RO-00097RO

PATIENT
  Weight: 3 kg

DRUGS (9)
  1. DIGOXIN [Suspect]
     Indication: CARDIAC FAILURE
     Dosage: 500MCG
     Route: 064
  2. DIGOXIN [Suspect]
     Route: 064
  3. DIGOXIN [Suspect]
     Dosage: 250MCG
     Route: 064
  4. DIGOXIN [Suspect]
     Dosage: 500MCG
     Route: 064
  5. DIGOXIN [Suspect]
     Dosage: 1000MCG
     Route: 064
  6. BETAMETHASONE [Suspect]
     Indication: MATERNAL THERAPY TO ENHANCE FOETAL LUNG MATURITY
     Route: 064
  7. SOTALOL [Suspect]
     Indication: SUPRAVENTRICULAR TACHYCARDIA
     Dosage: 160MG
     Route: 064
  8. SOTALOL [Suspect]
     Dosage: 240MG
     Route: 064
  9. SOTALOL [Suspect]
     Dosage: 360MG
     Route: 064

REACTIONS (5)
  - ASCITES [None]
  - ATRIAL SEPTAL DEFECT [None]
  - HYDROPS FOETALIS [None]
  - SUPRAVENTRICULAR TACHYCARDIA [None]
  - THERAPEUTIC RESPONSE DECREASED [None]
